FAERS Safety Report 7033596-4 (Version None)
Quarter: 2010Q4

REPORT INFORMATION
  Report Type: 
  Country: None (occurrence: None)
  Receive Date: 20101006
  Receipt Date: 20100924
  Transmission Date: 20110411
  Serious: No
  Sender: FDA-Public Use
  Company Number: 018148

PATIENT
  Sex: Female
  Weight: 89.6 kg

DRUGS (4)
  1. KEPPRA [Suspect]
     Indication: CONVULSION
     Dosage: (1000 MG BID ORAL), (1500 MG BID ORAL)
     Route: 048
     Dates: start: 20090531, end: 20100817
  2. KEPPRA [Suspect]
     Indication: CONVULSION
     Dosage: (1000 MG BID ORAL), (1500 MG BID ORAL)
     Route: 048
     Dates: start: 20100101
  3. PROZAC /00724401/ [Concomitant]
  4. XANAX [Concomitant]

REACTIONS (3)
  - EPILEPTIC AURA [None]
  - MALAISE [None]
  - MENTAL IMPAIRMENT [None]
